FAERS Safety Report 7569106-2 (Version None)
Quarter: 2011Q2

REPORT INFORMATION
  Report Type: 
  Country: None (occurrence: None)
  Receive Date: 20110623
  Receipt Date: 20090114
  Transmission Date: 20111010
  Serious: Yes (Hospitalization, Other)
  Sender: FDA-Public Use
  Company Number: CA-GENENTECH-320504

PATIENT
  Sex: Male
  Weight: 88 kg

DRUGS (1)
  1. OMALIZUMAB [Suspect]
     Indication: ASTHMA
     Dosage: 300 MG, UNKNOWN
     Route: 058
     Dates: start: 20060516

REACTIONS (5)
  - RESPIRATORY DISTRESS [None]
  - CHEST PAIN [None]
  - ASTHMA [None]
  - DYSPNOEA [None]
  - OBSTRUCTIVE AIRWAYS DISORDER [None]
